FAERS Safety Report 24683841 (Version 2)
Quarter: 2025Q1

REPORT INFORMATION
  Report Type: Spontaneous
  Country: JP (occurrence: JP)
  Receive Date: 20241202
  Receipt Date: 20250228
  Transmission Date: 20250409
  Serious: Yes (Other)
  Sender: BRISTOL-MYERS SQUIBB COMPANY
  Company Number: JP-BRISTOL-MYERS SQUIBB COMPANY-2024-185237

PATIENT
  Age: 66 Year
  Sex: Female

DRUGS (3)
  1. LENADEX [Suspect]
     Active Substance: DEXAMETHASONE ACETATE
     Indication: Plasma cell myeloma
     Dates: start: 202401
  2. POMALYST [Suspect]
     Active Substance: POMALIDOMIDE
     Indication: Plasma cell myeloma
     Dates: start: 202401
  3. ISATUXIMAB [Suspect]
     Active Substance: ISATUXIMAB
     Indication: Plasma cell myeloma
     Dates: start: 202401

REACTIONS (3)
  - Diplegia [Unknown]
  - Anorectal disorder [Unknown]
  - Bladder disorder [Unknown]

NARRATIVE: CASE EVENT DATE: 20240101
